FAERS Safety Report 20917994 (Version 1)
Quarter: 2022Q2

REPORT INFORMATION
  Report Type: Other
  Country: US (occurrence: None)
  Receive Date: 20220606
  Receipt Date: 20220606
  Transmission Date: 20220721
  Serious: Yes (Other)
  Sender: FDA-Public Use
  Company Number: US-ROCHE-2995304

PATIENT
  Sex: Female

DRUGS (3)
  1. OCREVUS [Suspect]
     Active Substance: OCRELIZUMAB
     Indication: Relapsing multiple sclerosis
     Route: 042
  2. BACLOFEN [Concomitant]
     Active Substance: BACLOFEN
  3. SIMVASTATIN [Concomitant]
     Active Substance: SIMVASTATIN

REACTIONS (5)
  - Optic neuritis [Unknown]
  - Paraesthesia [Unknown]
  - Hypoaesthesia [Unknown]
  - Ischaemia [Unknown]
  - Demyelination [Unknown]
